FAERS Safety Report 10083692 (Version 2)
Quarter: 2014Q2

REPORT INFORMATION
  Report Type: Spontaneous
  Country: US (occurrence: US)
  Receive Date: 20140417
  Receipt Date: 20140507
  Transmission Date: 20141212
  Serious: No
  Sender: FDA-Public Use
  Company Number: US-PFIZER INC-2014108014

PATIENT
  Age: 46 Year
  Sex: Female
  Weight: 64.4 kg

DRUGS (1)
  1. LYRICA [Suspect]
     Indication: FIBROMYALGIA
     Dosage: 150 MG, 3X/DAY
     Dates: start: 201401, end: 2014

REACTIONS (2)
  - Depression [Unknown]
  - Pain [Unknown]
